FAERS Safety Report 18770725 (Version 5)
Quarter: 2021Q2

REPORT INFORMATION
  Report Type: Spontaneous
  Country: DE (occurrence: DE)
  Receive Date: 20210121
  Receipt Date: 20210510
  Transmission Date: 20210717
  Serious: Yes (Other)
  Sender: FDA-Public Use
  Company Number: DE-NOVOPROD-779870

PATIENT
  Age: 43 Year
  Sex: Male
  Weight: 112 kg

DRUGS (5)
  1. ESPEROCT [Suspect]
     Active Substance: ANTIHEMOPHILIC FACTOR, HUMAN RECOMBINANT
     Dosage: 6000 I.E
     Route: 065
     Dates: start: 20201214, end: 20201214
  2. ESPEROCT [Suspect]
     Active Substance: ANTIHEMOPHILIC FACTOR, HUMAN RECOMBINANT
     Indication: FACTOR VIII DEFICIENCY
     Dosage: 4000 I.E. EVERY 2ND DAY
     Route: 065
     Dates: start: 20201203
  3. ESPEROCT [Suspect]
     Active Substance: ANTIHEMOPHILIC FACTOR, HUMAN RECOMBINANT
     Dosage: 4000 I.E. EVERY 2ND DAY
     Route: 065
     Dates: start: 20201209
  4. ESPEROCT [Suspect]
     Active Substance: ANTIHEMOPHILIC FACTOR, HUMAN RECOMBINANT
     Indication: PROPHYLAXIS
     Dosage: 4000 I.E. EVERY 2ND DAY
     Route: 065
     Dates: start: 20201205
  5. ESPEROCT [Suspect]
     Active Substance: ANTIHEMOPHILIC FACTOR, HUMAN RECOMBINANT
     Dosage: 4000 I.E. EVERY 2ND DAY
     Route: 065
     Dates: start: 20201207

REACTIONS (5)
  - Drug specific antibody present [Recovered/Resolved]
  - Drug specific antibody present [Recovered/Resolved]
  - Drug specific antibody present [Unknown]
  - Therapy non-responder [Unknown]
  - Haemorrhage [Unknown]

NARRATIVE: CASE EVENT DATE: 20201211
